FAERS Safety Report 6763926-X (Version None)
Quarter: 2010Q2

REPORT INFORMATION
  Report Type: 
  Country: None (occurrence: None)
  Receive Date: 20100608
  Receipt Date: 20100527
  Transmission Date: 20101027
  Serious: Yes (Death, Hospitalization)
  Sender: FDA-Public Use
  Company Number: 234939K09USA

PATIENT
  Age: 69 Year
  Sex: Female

DRUGS (1)
  1. REBIF [Suspect]
     Indication: MULTIPLE SCLEROSIS
     Dosage: 44 MCG, 3 IN 1 WK, SUBCUTANEOUS
     Route: 058
     Dates: start: 20090119, end: 20100311

REACTIONS (5)
  - DEVICE INTOLERANCE [None]
  - DYSPNOEA [None]
  - FALL [None]
  - MULTIPLE SCLEROSIS RELAPSE [None]
  - THINKING ABNORMAL [None]
